FAERS Safety Report 5704353-3 (Version None)
Quarter: 2008Q2

REPORT INFORMATION
  Report Type: 
  Country: None (occurrence: None)
  Receive Date: 20080414
  Receipt Date: 20080404
  Transmission Date: 20081010
  Serious: Yes (Hospitalization)
  Sender: FDA-Public Use
  Company Number: A0526193A

PATIENT
  Age: 82 Year
  Sex: Female

DRUGS (10)
  1. ADVAIR HFA [Suspect]
     Indication: ASTHMA
     Dosage: 1PUFF PER DAY
     Route: 055
  2. SPIRIVA [Concomitant]
     Dosage: 1PUFF PER DAY
     Route: 055
  3. ATACAND [Concomitant]
  4. LIPITOR [Concomitant]
  5. AZOPT [Concomitant]
  6. TIMOLOL MALEATE [Concomitant]
  7. SINGULAIR [Concomitant]
     Dosage: 1TAB PER DAY
     Route: 048
  8. COSOPT [Concomitant]
  9. AZOPT [Concomitant]
  10. TRAVATAN [Concomitant]

REACTIONS (5)
  - GLAUCOMA [None]
  - IMPAIRED DRIVING ABILITY [None]
  - MACULAR DEGENERATION [None]
  - THROAT IRRITATION [None]
  - VISUAL ACUITY REDUCED [None]
